FAERS Safety Report 6979412-8 (Version None)
Quarter: 2010Q3

REPORT INFORMATION
  Report Type: 
  Country: None (occurrence: None)
  Receive Date: 20100910
  Receipt Date: 20100910
  Transmission Date: 20110219
  Serious: No
  Sender: FDA-Public Use
  Company Number: None

PATIENT
  Sex: Male

DRUGS (13)
  1. VIBATIV [Suspect]
     Indication: OSTEOMYELITIS
     Dosage: 900 MG DAILY IV
     Route: 042
     Dates: start: 20100512, end: 20100623
  2. VIBATIV [Suspect]
  3. AMITRYPTILIN [Concomitant]
  4. ASPIRIN [Concomitant]
  5. CLONIDINE [Concomitant]
  6. ERGOCALCIFEROL [Concomitant]
  7. LEVITRA [Concomitant]
  8. METOPROLOL [Concomitant]
  9. MULTI-VITAMIN [Concomitant]
  10. MYFORTIC [Concomitant]
  11. PREDNISONE [Concomitant]
  12. OMEPRAZOLE [Concomitant]
  13. PROGRAF [Concomitant]

REACTIONS (2)
  - BLOOD CREATININE INCREASED [None]
  - URINE ANALYSIS ABNORMAL [None]
